FAERS Safety Report 8785491 (Version 1)
Quarter: 2012Q4

REPORT INFORMATION
  Report Type: 
  Country: SE (occurrence: SE)
  Receive Date: 20120914
  Receipt Date: 20120914
  Transmission Date: 20130627
  Serious: Yes (Other)
  Sender: FDA-Public Use
  Company Number: SE-ASTRAZENECA-2012SE69810

PATIENT
  Age: 64 Year
  Sex: Male
  Weight: 80 kg

DRUGS (4)
  1. MARCAIN [Suspect]
     Route: 037
  2. FENTANYL (BRAUN) [Suspect]
     Route: 037
  3. CHLORHEXIDINE ALCOHOL [Suspect]
  4. LIDOCAINE [Concomitant]
     Indication: LOCAL ANAESTHESIA
     Dosage: INFILTRATION
     Route: 058

REACTIONS (5)
  - Vertigo [Recovered/Resolved]
  - Nystagmus [Recovered/Resolved]
  - Hypotension [Recovered/Resolved]
  - Haemoglobin decreased [None]
  - Toxicity to various agents [None]
